FAERS Safety Report 9887783 (Version 3)
Quarter: 2014Q1

REPORT INFORMATION
  Report Type: Spontaneous
  Country: US (occurrence: US)
  Receive Date: 20140211
  Receipt Date: 20140326
  Transmission Date: 20141002
  Serious: Yes (Other)
  Sender: FDA-Public Use
  Company Number: US-PFIZER INC-2014033156

PATIENT
  Age: 31 Year
  Sex: Male

DRUGS (1)
  1. BENEFIX [Suspect]
     Indication: FACTOR IX DEFICIENCY
     Dosage: 16000 IU, MONTHLY
     Dates: start: 20080222

REACTIONS (2)
  - Haemorrhage [Unknown]
  - Tooth disorder [Unknown]
